FAERS Safety Report 9345046 (Version 2)
Quarter: 2014Q2

REPORT INFORMATION
  Report Type: Spontaneous
  Country: US (occurrence: US)
  Receive Date: 20130612
  Receipt Date: 20140429
  Transmission Date: 20141212
  Serious: Yes (Death, Hospitalization)
  Sender: FDA-Public Use
  Company Number: US-B.I. PHARMACEUTICALS,INC./RIDGEFIELD-2013-BI-16099BP

PATIENT
  Sex: Male

DRUGS (21)
  1. PRADAXA [Suspect]
     Indication: PRODUCT USED FOR UNKNOWN INDICATION
     Route: 048
     Dates: start: 201103, end: 20110603
  2. ALBUTEROL [Concomitant]
     Dosage: 15 MG
     Route: 065
  3. ALBUTEROL [Concomitant]
     Route: 065
  4. PREVACID [Concomitant]
     Dosage: 30 MG
     Route: 048
  5. ADVAIR [Concomitant]
     Dosage: 2 PUF
     Route: 065
  6. DIGOXIN [Concomitant]
     Dosage: 0.125 MG
     Route: 048
  7. VYTORIN [Concomitant]
     Route: 048
  8. LASIX [Concomitant]
     Dosage: 80 MG
     Route: 048
  9. LOPID [Concomitant]
     Route: 048
  10. NORVASC [Concomitant]
     Dosage: 5 MG
     Route: 048
  11. POTASSIUM CHLORIDE [Concomitant]
     Dosage: 20 MEQ
     Route: 048
  12. NASONEX NASAL SPRAY [Concomitant]
     Route: 065
  13. PROSCAR [Concomitant]
     Dosage: 5 MG
     Route: 048
  14. XALATAN [Concomitant]
     Route: 065
  15. MUCINEX [Concomitant]
     Dosage: 2400 MG
     Route: 048
  16. ASPIRIN [Concomitant]
     Dosage: 81 MG
     Route: 048
  17. ACETYLCYSTEINE [Concomitant]
     Route: 065
  18. NYSTATIN [Concomitant]
     Route: 065
  19. MIRALAX [Concomitant]
     Dosage: 17 G
     Route: 048
  20. COREG [Concomitant]
     Dosage: 6.25 MG
     Route: 048
  21. HYDROCODONE [Concomitant]
     Route: 065

REACTIONS (7)
  - Upper gastrointestinal haemorrhage [Fatal]
  - Cardiac arrest [Fatal]
  - Sepsis [Fatal]
  - Pneumonia [Fatal]
  - Acute myocardial infarction [Fatal]
  - Anaemia [Unknown]
  - Respiratory failure [Unknown]
